FAERS Safety Report 5584675-X (Version None)
Quarter: 2008Q1

REPORT INFORMATION
  Report Type: 
  Country: None (occurrence: None)
  Receive Date: 20080108
  Receipt Date: 20080101
  Transmission Date: 20080703
  Serious: Yes (Hospitalization, Other)
  Sender: FDA-Public Use
  Company Number: CN-PFIZER INC-2007108966

PATIENT
  Age: 73 Year
  Sex: Male

DRUGS (6)
  1. LIPITOR [Suspect]
     Route: 048
     Dates: start: 20071029, end: 20071225
  2. ACETYLSALICYLIC ACID SRT [Concomitant]
     Route: 048
  3. BETALOC [Concomitant]
     Route: 048
  4. TRITACE [Concomitant]
     Route: 048
  5. NORVASC [Concomitant]
     Route: 048
  6. HUMULIN 70/30 [Concomitant]
     Route: 058

REACTIONS (5)
  - BLOOD CREATINE PHOSPHOKINASE INCREASED [None]
  - BLOOD CREATINE PHOSPHOKINASE MB INCREASED [None]
  - BLOOD CREATININE INCREASED [None]
  - PAIN IN EXTREMITY [None]
  - PURPURA [None]
